FAERS Safety Report 14453497 (Version 1)
Quarter: 2018Q1

REPORT INFORMATION
  Report Type: Spontaneous
  Country: US (occurrence: US)
  Receive Date: 20180127
  Receipt Date: 20180127
  Transmission Date: 20180509
  Serious: Yes (Other)
  Sender: FDA-Public Use
  Company Number: None

PATIENT
  Sex: Female
  Weight: 40.5 kg

DRUGS (4)
  1. PROLIA [Suspect]
     Active Substance: DENOSUMAB
     Indication: BONE DENSITY ABNORMAL
     Dosage: ?          QUANTITY:1 INJECTION(S);?
     Route: 030
  2. POTASSIUM [Concomitant]
     Active Substance: POTASSIUM
  3. CAICIUM [Concomitant]
  4. BLOOD PRESSURE [Concomitant]

REACTIONS (2)
  - Pain in extremity [None]
  - Hypoaesthesia [None]

NARRATIVE: CASE EVENT DATE: 20180104
